FAERS Safety Report 21664589 (Version 1)
Quarter: 2022Q4

REPORT INFORMATION
  Report Type: Spontaneous
  Country: GB (occurrence: GB)
  Receive Date: 20221130
  Receipt Date: 20221130
  Transmission Date: 20230113
  Serious: Yes (Life-Threatening, Hospitalization)
  Sender: FDA-Public Use
  Company Number: GB-MHRA-MED-202204211543519310-WZEQG

PATIENT

DRUGS (6)
  1. CANAGLIFLOZIN [Suspect]
     Active Substance: CANAGLIFLOZIN
     Indication: Product used for unknown indication
     Route: 048
  2. PERINDOPRIL [Concomitant]
     Active Substance: PERINDOPRIL
  3. SENNA LEAF [Concomitant]
     Active Substance: SENNA LEAF
  4. SIMVASTATIN [Concomitant]
     Active Substance: SIMVASTATIN
  5. SITAGLIPTIN [Concomitant]
     Active Substance: SITAGLIPTIN
  6. METFORMIN [Concomitant]
     Active Substance: METFORMIN HYDROCHLORIDE

REACTIONS (2)
  - Diabetic ketoacidosis [Recovering/Resolving]
  - SARS-CoV-2 test positive [Unknown]
